FAERS Safety Report 9156557 (Version 2)
Quarter: 2013Q1

REPORT INFORMATION
  Report Type: Spontaneous
  Country: US (occurrence: None)
  Receive Date: 20130208
  Receipt Date: 20130304
  Transmission Date: 20140127
  Serious: Yes (Hospitalization, Other)
  Sender: FDA-Public Use
  Company Number: 2013P1001603

PATIENT
  Age: 81 Year
  Sex: Female
  Weight: 49.9 kg

DRUGS (8)
  1. PREDNISONE [Suspect]
     Dosage: 15 MG; BID-TID, PO
     Route: 048
     Dates: start: 201210, end: 20121015
  2. PREDNISONE [Suspect]
     Dosage: 15 MG; BID-TID, PO
     Route: 048
     Dates: start: 201210, end: 20121015
  3. TOPROL XL [Concomitant]
  4. DIOVAN [Concomitant]
  5. LANOXIN [Concomitant]
  6. COUMADIN [Concomitant]
  7. LIVALO [Concomitant]
  8. NORVASC [Concomitant]

REACTIONS (6)
  - Vomiting [None]
  - Diarrhoea [None]
  - Pneumonia [None]
  - Oedema peripheral [None]
  - Insomnia [None]
  - Psychomotor hyperactivity [None]
